FAERS Safety Report 7601253-9 (Version None)
Quarter: 2011Q3

REPORT INFORMATION
  Report Type: 
  Country: None (occurrence: None)
  Receive Date: 20110711
  Receipt Date: 20110628
  Transmission Date: 20111222
  Serious: Yes (Hospitalization)
  Sender: FDA-Public Use
  Company Number: CA-JNJFOC-20110700854

PATIENT
  Sex: Female
  Weight: 103.5 kg

DRUGS (1)
  1. REMICADE [Suspect]
     Indication: PSORIATIC ARTHROPATHY
     Route: 042
     Dates: start: 20101008

REACTIONS (4)
  - PALPITATIONS [None]
  - TACHYCARDIA [None]
  - IMPAIRED WORK ABILITY [None]
  - FATIGUE [None]
